FAERS Safety Report 9351691 (Version 2)
Quarter: 2014Q1

REPORT INFORMATION
  Report Type: Spontaneous
  Country: BR (occurrence: BR)
  Receive Date: 20130617
  Receipt Date: 20140127
  Transmission Date: 20141002
  Serious: Yes (Hospitalization, Other)
  Sender: FDA-Public Use
  Company Number: BR-009507513-1202BRA00017

PATIENT
  Age: 44 Year
  Sex: Female
  Weight: 90 kg

DRUGS (6)
  1. VYTORIN [Suspect]
     Indication: BLOOD CHOLESTEROL INCREASED
     Dosage: 10/10 MG, QD
     Route: 048
     Dates: start: 201105, end: 20120125
  2. VYTORIN [Suspect]
     Dosage: 10/20 MG, QD
     Route: 048
     Dates: end: 201302
  3. VYTORIN [Suspect]
     Dosage: 10/20 MG, QD
     Route: 048
  4. PRILOSEC [Concomitant]
     Indication: GASTRIC DISORDER
     Dosage: 20 MG, QD
     Route: 048
  5. PURAN T4 [Concomitant]
     Indication: HYPOTHYROIDISM
     Dosage: 1 TABLET, QD
     Route: 048
     Dates: start: 1985
  6. CORUS [Concomitant]
     Indication: HYPERTENSION
     Dosage: 50 MG, QD
     Route: 048
     Dates: start: 2006

REACTIONS (10)
  - Thyroid nodule removal [Recovered/Resolved]
  - Thyroid neoplasm [Recovered/Resolved with Sequelae]
  - Autoimmune thyroiditis [Recovered/Resolved with Sequelae]
  - Anaesthesia procedure [Recovered/Resolved]
  - Procedural complication [Recovered/Resolved]
  - Fungal infection [Not Recovered/Not Resolved]
  - Blood pressure increased [Recovered/Resolved]
  - Drug hypersensitivity [Recovered/Resolved]
  - Blood triglycerides increased [Not Recovered/Not Resolved]
  - Vaginitis bacterial [Not Recovered/Not Resolved]
